FAERS Safety Report 8329939-1 (Version None)
Quarter: 2012Q2

REPORT INFORMATION
  Report Type: 
  Country: None (occurrence: None)
  Receive Date: 20120502
  Receipt Date: 20120417
  Transmission Date: 20120825
  Serious: Yes (Hospitalization)
  Sender: FDA-Public Use
  Company Number: FR-ROCHE-1060145

PATIENT
  Sex: Male
  Weight: 102 kg

DRUGS (2)
  1. BENDAMUSTINE [Suspect]
     Indication: B-CELL LYMPHOMA
     Dosage: DATE OF LAST DOSE PRIOR TO SAE 23/MAR/2012
     Route: 042
     Dates: start: 20120322
  2. MABTHERA [Suspect]
     Indication: B-CELL LYMPHOMA
     Dosage: DATE OF LAST DOSE PRIOR TO SAE 23/MAR/2012
     Route: 042
     Dates: start: 20120321

REACTIONS (1)
  - PULMONARY EMBOLISM [None]
